FAERS Safety Report 6287990-X (Version None)
Quarter: 2009Q3

REPORT INFORMATION
  Report Type: 
  Country: None (occurrence: None)
  Receive Date: 20090729
  Receipt Date: 20090720
  Transmission Date: 20100115
  Serious: Yes (Hospitalization)
  Sender: FDA-Public Use
  Company Number: NL-AMGEN-US355837

PATIENT
  Age: 57 Year
  Sex: Female
  Weight: 71 kg

DRUGS (9)
  1. ENBREL [Suspect]
     Indication: RHEUMATOID ARTHRITIS
     Dosage: UNK DATE: 50 MG 2 TIMES PER WEEK. THERAPY TEMP DISCONTINUED:OPERATION. AFTER RESTART PERM WITHDRAWAL
  2. METHOTREXATE [Concomitant]
  3. THYRAX [Concomitant]
     Dosage: UNKNOWN
  4. CALCICHEW [Concomitant]
     Dosage: UNKNOWN
  5. FOLIC ACID [Concomitant]
     Dosage: UNKNOWN
  6. OMEPRAZOLE [Concomitant]
     Dosage: UNKNOWN
  7. ACTONEL [Concomitant]
     Dosage: 1X WEEK
  8. NAPROXEN [Concomitant]
     Dosage: UNKNOWN
  9. PREDNISOLONE [Concomitant]
     Dosage: UNKNOWN

REACTIONS (4)
  - CONDITION AGGRAVATED [None]
  - DRUG INEFFECTIVE [None]
  - FOOT OPERATION [None]
  - RHEUMATOID ARTHRITIS [None]
